FAERS Safety Report 7495430-8 (Version None)
Quarter: 2011Q2

REPORT INFORMATION
  Report Type: 
  Country: None (occurrence: None)
  Receive Date: 20110513
  Receipt Date: 20110429
  Transmission Date: 20111010
  Serious: Yes (Hospitalization)
  Sender: FDA-Public Use
  Company Number: 2011SP019788

PATIENT
  Age: 62 Year
  Sex: Female

DRUGS (4)
  1. KEPPRA [Concomitant]
  2. TEMODAL [Suspect]
     Indication: GLIOBLASTOMA MULTIFORME
     Dosage: 100 MG;QD;PO, 20 MG;QD;PO
     Route: 048
     Dates: start: 20110221
  3. TEMODAL [Suspect]
     Indication: GLIOBLASTOMA MULTIFORME
     Dosage: 100 MG;QD;PO, 20 MG;QD;PO
     Route: 048
     Dates: start: 20110221
  4. TEMODAL [Suspect]

REACTIONS (1)
  - FEBRILE NEUTROPENIA [None]
